FAERS Safety Report 5470154-7 (Version None)
Quarter: 2007Q3

REPORT INFORMATION
  Report Type: 
  Country: None (occurrence: None)
  Receive Date: 20070927
  Receipt Date: 20070918
  Transmission Date: 20080115
  Serious: Yes (Other)
  Sender: FDA-Public Use
  Company Number: US-PFIZER INC-2007078324

PATIENT
  Sex: Female
  Weight: 46.363 kg

DRUGS (2)
  1. ACCUPRIL [Suspect]
     Indication: HYPERTENSION
     Dosage: DAILY DOSE:5MG-FREQ:DAILY
  2. MIACALCIN [Suspect]
     Indication: OSTEOPOROSIS
     Route: 045

REACTIONS (5)
  - BLOOD AMYLASE INCREASED [None]
  - BLOOD BILIRUBIN INCREASED [None]
  - NASAL DISORDER [None]
  - PANCREATIC CYST [None]
  - PIGMENTATION DISORDER [None]
